FAERS Safety Report 8622363-3 (Version None)
Quarter: 2012Q3

REPORT INFORMATION
  Report Type: 
  Country: None (occurrence: None)
  Receive Date: 20120827
  Receipt Date: 20120820
  Transmission Date: 20120928
  Serious: No
  Sender: FDA-Public Use
  Company Number: US-BIOGENIDEC-2012BI032410

PATIENT
  Age: 56 Year
  Sex: Male

DRUGS (1)
  1. TYSABRI [Suspect]
     Indication: MULTIPLE SCLEROSIS
     Route: 042
     Dates: start: 20120402

REACTIONS (7)
  - ARTHRALGIA [None]
  - FATIGUE [None]
  - DRUG INEFFECTIVE [None]
  - FEELING ABNORMAL [None]
  - NAUSEA [None]
  - BALANCE DISORDER [None]
  - MYALGIA [None]
